FAERS Safety Report 23780312 (Version 1)
Quarter: 2024Q2

REPORT INFORMATION
  Report Type: Spontaneous
  Country: CN (occurrence: CN)
  Receive Date: 20240424
  Receipt Date: 20240424
  Transmission Date: 20240716
  Serious: Yes (Other)
  Sender: FDA-Public Use
  Company Number: CN-002147023-NVSC2024CN079218

PATIENT
  Age: 72 Year
  Sex: Female
  Weight: 73 kg

DRUGS (1)
  1. SACUBITRIL\VALSARTAN [Suspect]
     Active Substance: SACUBITRIL\VALSARTAN
     Indication: Cardiac failure
     Dosage: 25 MG, BID
     Route: 048
     Dates: start: 20240310, end: 20240313

REACTIONS (4)
  - Hypotension [Recovering/Resolving]
  - Hyperhidrosis [Unknown]
  - Peripheral coldness [Unknown]
  - Off label use [Unknown]

NARRATIVE: CASE EVENT DATE: 20240313
